FAERS Safety Report 14357727 (Version 2)
Quarter: 2018Q1

REPORT INFORMATION
  Report Type: Spontaneous
  Country: BE (occurrence: BE)
  Receive Date: 20180105
  Receipt Date: 20180118
  Transmission Date: 20180509
  Serious: No
  Sender: FDA-Public Use
  Company Number: BE-BIOVERATIV-2017BV000485

PATIENT
  Age: 23 Year
  Sex: Male

DRUGS (2)
  1. ELOCTA [Suspect]
     Active Substance: EFMOROCTOCOG ALFA
     Route: 065
  2. ELOCTA [Suspect]
     Active Substance: EFMOROCTOCOG ALFA
     Indication: HAEMARTHROSIS
     Route: 065
     Dates: start: 2017

REACTIONS (1)
  - Haemarthrosis [Not Recovered/Not Resolved]
